FAERS Safety Report 6110960-9 (Version None)
Quarter: 2009Q1

REPORT INFORMATION
  Report Type: 
  Country: None (occurrence: None)
  Receive Date: 20090311
  Receipt Date: 20090304
  Transmission Date: 20090719
  Serious: Yes (Hospitalization)
  Sender: FDA-Public Use
  Company Number: GB-NOVOPROD-283472

PATIENT
  Sex: Female

DRUGS (1)
  1. MIXTARD HUMAN 70/30 [Suspect]
     Indication: DRUG USE FOR UNKNOWN INDICATION
     Dosage: 96 IU, QD (72+24)
     Route: 058

REACTIONS (5)
  - CIRCULATORY COLLAPSE [None]
  - EYE IRRITATION [None]
  - EYE PAIN [None]
  - FALL [None]
  - RHINALGIA [None]
